FAERS Safety Report 9035783 (Version 1)
Quarter: 2013Q1

REPORT INFORMATION
  Report Type: Report from Study
  Country: US (occurrence: US)
  Receive Date: 20130129
  Receipt Date: 20130129
  Transmission Date: 20140127
  Serious: No
  Sender: FDA-Public Use
  Company Number: US-ABBOTT-12P-163-0926780-00

PATIENT
  Age: 55 Year
  Sex: Male

DRUGS (6)
  1. HUMIRA 40 MG/0.8 ML PEN [Suspect]
     Indication: PSORIATIC ARTHROPATHY
     Dates: start: 201203
  2. SULFASALAZINE [Concomitant]
     Indication: INFLAMMATION
     Dosage: DAILY
  3. ACCUPRIL [Concomitant]
     Indication: HYPERTENSION
     Dosage: DAILY
  4. HCTZ [Concomitant]
     Indication: HYPERTENSION
     Dosage: DAILY
  5. LIPITOR [Concomitant]
     Indication: BLOOD CHOLESTEROL INCREASED
     Dosage: DAILY
  6. HYDROCODONE [Concomitant]
     Indication: PAIN
     Dosage: DAILY

REACTIONS (2)
  - Pain [Not Recovered/Not Resolved]
  - Weight increased [Not Recovered/Not Resolved]
